FAERS Safety Report 7395982-2 (Version None)
Quarter: 2011Q2

REPORT INFORMATION
  Report Type: 
  Country: None (occurrence: None)
  Receive Date: 20110406
  Receipt Date: 20110329
  Transmission Date: 20111010
  Serious: No
  Sender: FDA-Public Use
  Company Number: US-BIOGENIDEC-2011BI012057

PATIENT
  Age: 58 Year
  Sex: Female

DRUGS (2)
  1. AVONEX [Suspect]
     Indication: MULTIPLE SCLEROSIS
     Route: 030
     Dates: start: 20100714
  2. AVONEX [Suspect]
     Route: 030
     Dates: start: 19990901

REACTIONS (3)
  - STRESS [None]
  - INSOMNIA [None]
  - MIGRAINE [None]
